FAERS Safety Report 10035552 (Version 2)
Quarter: 2014Q2

REPORT INFORMATION
  Report Type: Spontaneous
  Country: US (occurrence: US)
  Receive Date: 20140325
  Receipt Date: 20140627
  Transmission Date: 20141212
  Serious: No
  Sender: FDA-Public Use
  Company Number: US-PFIZER INC-2014081806

PATIENT
  Age: 51 Year
  Sex: Male

DRUGS (1)
  1. BOSULIF [Suspect]
     Indication: CHRONIC MYELOID LEUKAEMIA (IN REMISSION)
     Dosage: 400 MG, DAILY
     Route: 048
     Dates: start: 20130927

REACTIONS (3)
  - Diarrhoea [Unknown]
  - Insomnia [Unknown]
  - Candida infection [Unknown]
